FAERS Safety Report 14949303 (Version 1)
Quarter: 2018Q2

REPORT INFORMATION
  Report Type: Spontaneous
  Country: US (occurrence: US)
  Receive Date: 20180529
  Receipt Date: 20180529
  Transmission Date: 20180711
  Serious: Yes (Hospitalization)
  Sender: FDA-Public Use
  Company Number: US-ACTELION-A-NJ2018-172670

PATIENT
  Age: 10 Month
  Sex: Female

DRUGS (11)
  1. ASPIRIN. [Concomitant]
     Active Substance: ASPIRIN
     Dosage: 40.5 MG, QD
  2. DIGOXIN. [Concomitant]
     Active Substance: DIGOXIN
     Dosage: 20 MCG, Q12HRS
  3. GABAPENTIN. [Concomitant]
     Active Substance: GABAPENTIN
     Dosage: 75 MG, Q8H
  4. OMEPRAZOLE. [Concomitant]
     Active Substance: OMEPRAZOLE
     Dosage: 7.4 MG, BID
  5. REVATIO [Concomitant]
     Active Substance: SILDENAFIL CITRATE
     Dosage: 6 MG, TID
  6. METOCLOPRAMIDE. [Concomitant]
     Active Substance: METOCLOPRAMIDE
     Dosage: 0.5 MG, BID
  7. DIURIL [Concomitant]
     Active Substance: CHLOROTHIAZIDE
     Dosage: 20 MG, QHS
  8. CHOLECALCIFEROL [Concomitant]
     Active Substance: CHOLECALCIFEROL
     Dosage: 800 U, Q 48HR
  9. SPIRONOLACTONE. [Concomitant]
     Active Substance: SPIRONOLACTONE
     Dosage: 6 MG, Q12HRS
  10. TRACLEER [Suspect]
     Active Substance: BOSENTAN
     Indication: PULMONARY HYPERTENSION
     Dosage: 15.625 MG, BID
     Route: 048
  11. FUROSEMIDE. [Concomitant]
     Active Substance: FUROSEMIDE
     Dosage: 15 MG, Q8H

REACTIONS (1)
  - Congenital cardiovascular anomaly [Unknown]
